FAERS Safety Report 16453072 (Version 1)
Quarter: 2019Q2

REPORT INFORMATION
  Report Type: Spontaneous
  Country: US (occurrence: US)
  Receive Date: 20190619
  Receipt Date: 20190619
  Transmission Date: 20190711
  Serious: No
  Sender: FDA-Public Use
  Company Number: US-SA-2019SA161111

PATIENT
  Age: 68 Year
  Sex: Male

DRUGS (1)
  1. DUPIXENT [Suspect]
     Active Substance: DUPILUMAB
     Indication: URTICARIA CHRONIC
     Dosage: 300 MG, Q15D
     Dates: start: 20190202

REACTIONS (6)
  - Product use in unapproved indication [Unknown]
  - Pruritus [Unknown]
  - Scratch [Unknown]
  - Drug ineffective [Unknown]
  - Blister [Unknown]
  - Pruritus generalised [Unknown]

NARRATIVE: CASE EVENT DATE: 20190202
